FAERS Safety Report 24834146 (Version 2)
Quarter: 2025Q1

REPORT INFORMATION
  Report Type: Report from Study
  Country: US (occurrence: US)
  Receive Date: 20250113
  Receipt Date: 20250218
  Transmission Date: 20250408
  Serious: No
  Sender: JOHNSON AND JOHNSON
  Company Number: US-JNJFOC-20241249812

PATIENT
  Sex: Male
  Weight: 88.9 kg

DRUGS (1)
  1. TREMFYA [Suspect]
     Active Substance: GUSELKUMAB
     Indication: Psoriatic arthropathy
     Route: 065

REACTIONS (4)
  - Needle issue [Unknown]
  - Product dose omission issue [Unknown]
  - Injection site pruritus [Unknown]
  - Injection site bruising [Unknown]
